FAERS Safety Report 8972305 (Version 3)
Quarter: 2013Q1

REPORT INFORMATION
  Report Type: Spontaneous
  Country: US (occurrence: None)
  Receive Date: 20121211
  Receipt Date: 20130318
  Transmission Date: 20140127
  Serious: Yes (Other)
  Sender: FDA-Public Use
  Company Number: AXC-2012-000563

PATIENT
  Age: 66 Year
  Sex: Female
  Weight: 79.4 kg

DRUGS (1)
  1. ZENPEP [Suspect]
     Indication: PANCREATITIS
     Dosage: 15000 USP
     Route: 048
     Dates: start: 20121110

REACTIONS (3)
  - Pharyngeal oedema [None]
  - Lip swelling [None]
  - Reaction to drug excipients [None]
